FAERS Safety Report 4339950-3 (Version None)
Quarter: 2004Q2

REPORT INFORMATION
  Report Type: 
  Country: None (occurrence: None)
  Receive Date: 20040416
  Receipt Date: 20040202
  Transmission Date: 20050107
  Serious: Yes (Other)
  Sender: FDA-Public Use
  Company Number: DE-GLAXOSMITHKLINE-D0043016A

PATIENT
  Age: 51 Year
  Sex: Female

DRUGS (4)
  1. ELMENDOS [Suspect]
     Route: 048
     Dates: start: 20040117, end: 20040101
  2. DICLOFENAC SODIUM [Suspect]
     Indication: EPICONDYLITIS
     Route: 061
  3. APONAL [Concomitant]
     Indication: AFFECTIVE DISORDER
     Dosage: 150MG PER DAY
     Route: 065
  4. THYREOTOM [Concomitant]
     Dosage: 1TAB PER DAY
     Route: 048
     Dates: start: 20031211

REACTIONS (3)
  - DRUG INTERACTION [None]
  - RASH PRURITIC [None]
  - TOXIC EPIDERMAL NECROLYSIS [None]
